FAERS Safety Report 4879720-0 (Version None)
Quarter: 2006Q1

REPORT INFORMATION
  Report Type: 
  Country: None (occurrence: None)
  Receive Date: 20060113
  Receipt Date: 20060110
  Transmission Date: 20060701
  Serious: Yes (Hospitalization)
  Sender: FDA-Public Use
  Company Number: 2006CG00089

PATIENT
  Sex: Male

DRUGS (1)
  1. DIPRIVAN [Suspect]
     Route: 042
     Dates: start: 20060103, end: 20060103

REACTIONS (1)
  - PURPURA [None]
